FAERS Safety Report 10262223 (Version 4)
Quarter: 2014Q3

REPORT INFORMATION
  Report Type: Report from Study
  Country: JP (occurrence: JP)
  Receive Date: 20140626
  Receipt Date: 20140811
  Transmission Date: 20150326
  Serious: Yes (Hospitalization)
  Sender: FDA-Public Use
  Company Number: JP-PFIZER INC-2014169488

PATIENT
  Age: 33 Year
  Sex: Female
  Weight: 41.8 kg

DRUGS (17)
  1. MAGLAX [Concomitant]
     Active Substance: MAGNESIUM OXIDE
     Dosage: UNK
     Route: 048
  2. OXINORM [Concomitant]
     Active Substance: OXYCODONE HYDROCHLORIDE
     Dosage: 2.5 MG, AS NEEDED
     Route: 048
     Dates: start: 20140206
  3. ZOLPIDEM [Concomitant]
     Active Substance: ZOLPIDEM\ZOLPIDEM TARTRATE
     Dosage: 5 MG, AS NEEDED
     Route: 048
     Dates: end: 20140330
  4. DUROTEP [Concomitant]
     Active Substance: FENTANYL
     Dosage: 2.1 MG, UNK
     Route: 003
     Dates: start: 20140208, end: 20140216
  5. OXYCONTIN [Concomitant]
     Active Substance: OXYCODONE HYDROCHLORIDE
     Dosage: 5 MG, 2X/DAY
     Route: 048
     Dates: start: 20140224
  6. BETAMETHASONE [Concomitant]
     Active Substance: BETAMETHASONE
     Dosage: 1 MG, 1X/DAY
     Route: 048
     Dates: end: 20140307
  7. XALKORI [Suspect]
     Active Substance: CRIZOTINIB
     Indication: NON-SMALL CELL LUNG CANCER
     Dosage: 250 MG, 2X/DAY
     Route: 048
     Dates: start: 20140204, end: 20140310
  8. LOBU OHARA [Concomitant]
     Dosage: 60 MG, 3X/DAY
     Route: 048
  9. SENNOSIDE A+B CALCIUM [Concomitant]
     Active Substance: SENNOSIDES A AND B
     Dosage: 24 MG, AS NEEDED
     Route: 048
  10. NOVAMIN [Concomitant]
     Active Substance: PROCHLORPERAZINE MALEATE
     Dosage: 5 MG, 2X/DAY
     Route: 048
     Dates: end: 20140307
  11. ETIZOLAM [Concomitant]
     Active Substance: ETIZOLAM
     Dosage: 0.5 MG, 3X/DAY
     Route: 048
  12. NASEA [Concomitant]
     Active Substance: RAMOSETRON HYDROCHLORIDE
     Dosage: 0.1 MG, 1X/DAY
     Route: 048
     Dates: start: 20140206, end: 20140217
  13. LANSOPRAZOLE. [Concomitant]
     Active Substance: LANSOPRAZOLE
     Dosage: 15 MG, 1X/DAY
     Route: 048
     Dates: end: 20140320
  14. AMITIZA [Concomitant]
     Active Substance: LUBIPROSTONE
     Dosage: 24 UG, 2X/DAY
     Route: 048
  15. OXYCONTIN [Concomitant]
     Active Substance: OXYCODONE HYDROCHLORIDE
     Dosage: 10 MG, 2X/DAY
     Route: 048
     Dates: start: 20140217, end: 20140223
  16. LYRICA [Suspect]
     Active Substance: PREGABALIN
     Indication: CANCER PAIN
     Dosage: 75 MG, 2X/DAY
     Route: 048
     Dates: start: 20140201, end: 20140317
  17. MUCOSTA [Concomitant]
     Active Substance: REBAMIPIDE
     Dosage: 100 MG, 3X/DAY
     Route: 048

REACTIONS (1)
  - Drug-induced liver injury [Recovered/Resolved]

NARRATIVE: CASE EVENT DATE: 20140311
